FAERS Safety Report 15265885 (Version 1)
Quarter: 2018Q3

REPORT INFORMATION
  Report Type: Spontaneous
  Country: CA (occurrence: CA)
  Receive Date: 20180810
  Receipt Date: 20180810
  Transmission Date: 20181010
  Serious: Yes (Life-Threatening, Hospitalization, Other)
  Sender: FDA-Public Use
  Company Number: CA-BAYER-2018-145813

PATIENT
  Age: 34 Year
  Sex: Female
  Weight: 53.03 kg

DRUGS (1)
  1. MIRENA [Suspect]
     Active Substance: LEVONORGESTREL
     Indication: CONTRACEPTION
     Dosage: 20 MCG/24HR, CONT
     Route: 015

REACTIONS (5)
  - Complication of device removal [Unknown]
  - Hysteroscopy [Unknown]
  - Device dislocation [Unknown]
  - Uterine dilation and curettage [Unknown]
  - Device issue [Unknown]
